FAERS Safety Report 13724810 (Version 1)
Quarter: 2017Q3

REPORT INFORMATION
  Report Type: Spontaneous
  Country: US (occurrence: US)
  Receive Date: 20170706
  Receipt Date: 20170706
  Transmission Date: 20171127
  Serious: Yes (Other)
  Sender: FDA-Public Use
  Company Number: US-ALKERMES INC.-ALK-2017-002631

PATIENT
  Age: 32 Year
  Sex: Male
  Weight: 86.17 kg

DRUGS (2)
  1. VIVITROL [Suspect]
     Active Substance: NALTREXONE
     Indication: DRUG DEPENDENCE
     Dosage: 380 MG, QMO
     Route: 030
     Dates: start: 201407, end: 20150610
  2. ANTIDEPRESSANTS [Concomitant]
     Active Substance: UNSPECIFIED INGREDIENT
     Indication: DEPRESSION
     Dosage: UNK

REACTIONS (10)
  - Joint injury [Recovered/Resolved]
  - Needle issue [Recovered/Resolved]
  - Pain [Recovered/Resolved]
  - Euphoric mood [Not Recovered/Not Resolved]
  - Injection site reaction [Unknown]
  - Injection site nerve damage [Unknown]
  - Injection site scar [Unknown]
  - Presyncope [Recovered/Resolved]
  - Drug dependence [Not Recovered/Not Resolved]
  - Hyperhidrosis [Recovered/Resolved]

NARRATIVE: CASE EVENT DATE: 201612
